FAERS Safety Report 16106712 (Version 1)
Quarter: 2019Q1

REPORT INFORMATION
  Report Type: Spontaneous
  Country: FR (occurrence: FR)
  Receive Date: 20190322
  Receipt Date: 20190322
  Transmission Date: 20190418
  Serious: Yes (Life-Threatening, Hospitalization)
  Sender: FDA-Public Use
  Company Number: FR-JNJFOC-20190331064

PATIENT
  Age: 75 Year
  Sex: Male
  Weight: 87.4 kg

DRUGS (6)
  1. AVODART [Concomitant]
     Active Substance: DUTASTERIDE
     Route: 065
  2. XARELTO [Suspect]
     Active Substance: RIVAROXABAN
     Indication: ATRIAL FIBRILLATION
     Route: 048
     Dates: start: 201812, end: 20190207
  3. SERETIDE [Concomitant]
     Active Substance: FLUTICASONE PROPIONATE\SALMETEROL XINAFOATE
     Route: 065
  4. HEMIGOXINE NATIVELLE [Concomitant]
     Active Substance: DIGOXIN
     Route: 065
  5. TAREG [Concomitant]
     Active Substance: VALSARTAN
     Route: 065
  6. LIPANTHYL [Concomitant]
     Active Substance: FENOFIBRATE
     Route: 065

REACTIONS (3)
  - Epistaxis [Recovered/Resolved]
  - Pneumonia aspiration [Recovered/Resolved]
  - Respiratory distress [Recovered/Resolved]

NARRATIVE: CASE EVENT DATE: 20190207
